FAERS Safety Report 5039348-9 (Version None)
Quarter: 2006Q2

REPORT INFORMATION
  Report Type: 
  Country: None (occurrence: None)
  Receive Date: 20060623
  Receipt Date: 20060615
  Transmission Date: 20061013
  Serious: Yes (Hospitalization, Other)
  Sender: FDA-Public Use
  Company Number: 2006050492

PATIENT
  Age: 73 Year
  Sex: Female
  Weight: 72.5755 kg

DRUGS (4)
  1. LYRICA [Suspect]
     Indication: NEUROPATHY PERIPHERAL
     Dosage: 200 MG (100 MG, 2 IN 1 D), ORAL
     Route: 048
     Dates: start: 20050901
  2. DARVOCET-N 100 [Concomitant]
  3. WARFARIN SODIUM [Concomitant]
  4. COZAAR [Concomitant]

REACTIONS (2)
  - DRUG EFFECT DECREASED [None]
  - PAIN [None]
